FAERS Safety Report 6786859-1 (Version None)
Quarter: 2010Q2

REPORT INFORMATION
  Report Type: 
  Country: None (occurrence: None)
  Receive Date: 20100623
  Receipt Date: 20100610
  Transmission Date: 20101027
  Serious: Yes (Life-Threatening, Other)
  Sender: FDA-Public Use
  Company Number: CH-GENENTECH-302953

PATIENT
  Sex: Male

DRUGS (8)
  1. MABTHERA [Suspect]
     Indication: NON-HODGKIN'S LYMPHOMA
     Dosage: UNK
     Route: 065
  2. MABTHERA [Suspect]
     Dosage: UNK
     Route: 065
  3. MABTHERA [Suspect]
     Dosage: UNK
     Route: 065
     Dates: end: 20100609
  4. CYCLOPHOSPHAMIDE [Concomitant]
     Indication: NON-HODGKIN'S LYMPHOMA
     Dosage: UNK
  5. ONCOVIN [Concomitant]
     Indication: NON-HODGKIN'S LYMPHOMA
     Dosage: UNK
  6. PREDNISONE [Concomitant]
     Indication: NON-HODGKIN'S LYMPHOMA
     Dosage: UNK
  7. LEUKERAN [Concomitant]
     Indication: NON-HODGKIN'S LYMPHOMA
     Dosage: UNK
  8. BENDAMUSTINE [Concomitant]
     Indication: NON-HODGKIN'S LYMPHOMA
     Dosage: UNK

REACTIONS (2)
  - HYPERSENSITIVITY [None]
  - PANCREATITIS [None]
